FAERS Safety Report 9299480 (Version 1)
Quarter: 2013Q2

REPORT INFORMATION
  Report Type: Spontaneous
  Country: JP (occurrence: JP)
  Receive Date: 20130521
  Receipt Date: 20130521
  Transmission Date: 20140414
  Serious: Yes (Other)
  Sender: FDA-Public Use
  Company Number: JP-ROCHE-1224251

PATIENT
  Age: 8 Decade
  Sex: Female

DRUGS (1)
  1. XELODA [Suspect]
     Indication: COLON CANCER
     Dosage: DOSAGE IS UNCERTAIN.
     Route: 048

REACTIONS (5)
  - Renal disorder [Unknown]
  - Stomatitis [Unknown]
  - Dizziness [Unknown]
  - Palmar-plantar erythrodysaesthesia syndrome [Unknown]
  - Blood pressure decreased [Unknown]
